FAERS Safety Report 12533470 (Version 2)
Quarter: 2016Q3

REPORT INFORMATION
  Report Type: Report from Study
  Country: US (occurrence: US)
  Receive Date: 20160706
  Receipt Date: 20160707
  Transmission Date: 20161109
  Serious: Yes (Other)
  Sender: FDA-Public Use
  Company Number: US-ABBVIE-16K-163-1665908-00

PATIENT
  Age: 34 Year
  Sex: Female
  Weight: 56.3 kg

DRUGS (3)
  1. HUMIRA [Suspect]
     Active Substance: ADALIMUMAB
     Indication: PSORIASIS
     Route: 058
     Dates: start: 2014, end: 2014
  2. HUMIRA [Suspect]
     Active Substance: ADALIMUMAB
     Indication: PSORIATIC ARTHROPATHY
     Route: 058
     Dates: start: 2007, end: 2013
  3. HUMIRA [Suspect]
     Active Substance: ADALIMUMAB
     Route: 058
     Dates: start: 2015, end: 2015

REACTIONS (13)
  - Psoriasis [Recovering/Resolving]
  - Inappropriate schedule of drug administration [Recovered/Resolved]
  - Uterine hypertonus [Recovered/Resolved]
  - Expired product administered [Recovered/Resolved]
  - Placenta praevia [Recovered/Resolved]
  - Exposure during pregnancy [Unknown]
  - Live birth [Unknown]
  - Psoriasis [Not Recovered/Not Resolved]
  - Hyperemesis gravidarum [Recovered/Resolved]
  - Psoriasis [Recovering/Resolving]
  - Expired product administered [Recovered/Resolved]
  - Arthralgia [Not Recovered/Not Resolved]
  - Vaginal haemorrhage [Recovered/Resolved]

NARRATIVE: CASE EVENT DATE: 2013
